FAERS Safety Report 12396256 (Version 2)
Quarter: 2016Q3

REPORT INFORMATION
  Report Type: Report from Study
  Country: US (occurrence: US)
  Receive Date: 20160524
  Receipt Date: 20160923
  Transmission Date: 20161109
  Serious: Yes (Hospitalization)
  Sender: FDA-Public Use
  Company Number: US-ROCHE-1689666

PATIENT
  Age: 84 Year
  Sex: Male
  Weight: 59 kg

DRUGS (16)
  1. VEMURAFENIB [Suspect]
     Active Substance: VEMURAFENIB
     Dosage: C7D1 06/MAY/2016-13/MAY/2016
     Route: 048
     Dates: start: 20160506, end: 20160513
  2. 5-FLUOROURACIL [Concomitant]
     Active Substance: FLUOROURACIL
     Route: 065
     Dates: start: 20150302, end: 20150413
  3. IRINOTECAN [Suspect]
     Active Substance: IRINOTECAN
     Dosage: DATE OF LAST DOSE PRIOR TO EVENT: 10/AUG/2016
     Route: 042
     Dates: start: 20160727, end: 20160810
  4. ELOXATIN [Concomitant]
     Active Substance: OXALIPLATIN
     Route: 065
     Dates: start: 20150302, end: 20150413
  5. CETUXIMAB [Suspect]
     Active Substance: CETUXIMAB
     Indication: COLORECTAL CANCER METASTATIC
     Dosage: LAST ADMINISTERED DATE: 22/DEC/2015
     Route: 042
     Dates: start: 20151222
  6. IRINOTECAN [Suspect]
     Active Substance: IRINOTECAN
     Indication: COLORECTAL CANCER METASTATIC
     Dosage: LAST ADMINISTERED DATE: 22/DEC/2015
     Route: 042
     Dates: start: 20151222, end: 20151222
  7. VEMURAFENIB [Suspect]
     Active Substance: VEMURAFENIB
     Indication: COLORECTAL CANCER METASTATIC
     Dosage: TOTAL DOSE ADMINISTERED TILL THIS COURSE: 15360 MG.?LAST DOSE PRIOR TO AE ON: 15/JAN/2016
     Route: 048
     Dates: start: 20151222, end: 20151227
  8. CETUXIMAB [Suspect]
     Active Substance: CETUXIMAB
     Dosage: MOST RECENT DOSE: 06/MAY/2016
     Route: 042
     Dates: start: 20160506
  9. IRINOTECAN [Suspect]
     Active Substance: IRINOTECAN
     Route: 042
     Dates: start: 201506, end: 201508
  10. IRINOTECAN [Suspect]
     Active Substance: IRINOTECAN
     Dosage: MOST RECENT DOSE: 06/MAY/2016
     Route: 042
     Dates: start: 20160506
  11. 5-FLUOROURACIL [Concomitant]
     Active Substance: FLUOROURACIL
     Route: 065
     Dates: start: 201506, end: 201508
  12. VEMURAFENIB [Suspect]
     Active Substance: VEMURAFENIB
     Dosage: CYCLE 10?LAST DOSE PRIOR TO EVENT: 23/AUG/2016
     Route: 048
     Dates: start: 20160727, end: 20160823
  13. CETUXIMAB [Suspect]
     Active Substance: CETUXIMAB
     Dosage: DATE OF LAST DOSE PRIOR TO EVENT: 10/AUG/2016
     Route: 042
     Dates: start: 20160727, end: 20160802
  14. CETUXIMAB [Suspect]
     Active Substance: CETUXIMAB
     Route: 042
     Dates: start: 20151002
  15. VEMURAFENIB [Suspect]
     Active Substance: VEMURAFENIB
     Route: 048
     Dates: start: 20151002
  16. IRINOTECAN [Suspect]
     Active Substance: IRINOTECAN
     Route: 042
     Dates: start: 20151002

REACTIONS (6)
  - Febrile neutropenia [Recovering/Resolving]
  - Anaemia [Recovered/Resolved]
  - Anaemia [Recovering/Resolving]
  - Small intestinal haemorrhage [Recovered/Resolved]
  - Small intestinal obstruction [Recovering/Resolving]
  - Headache [Unknown]

NARRATIVE: CASE EVENT DATE: 20151224
